FAERS Safety Report 6628437-0 (Version None)
Quarter: 2010Q1

REPORT INFORMATION
  Report Type: 
  Country: None (occurrence: None)
  Receive Date: 20100311
  Receipt Date: 20100226
  Transmission Date: 20100710
  Serious: Yes (Hospitalization, Other)
  Sender: FDA-Public Use
  Company Number: FR-PFIZER INC-2009301985

PATIENT
  Age: 43 Year
  Sex: Male

DRUGS (1)
  1. CHAMPIX [Suspect]
     Indication: SMOKING CESSATION THERAPY
     Dosage: UNK
     Dates: start: 20091001

REACTIONS (4)
  - BALANCE DISORDER [None]
  - DEAFNESS [None]
  - HEADACHE [None]
  - OCULAR HYPERTENSION [None]
